FAERS Safety Report 13705508 (Version 3)
Quarter: 2017Q3

REPORT INFORMATION
  Report Type: Report from Study
  Country: CA (occurrence: CA)
  Receive Date: 20170630
  Receipt Date: 20170731
  Transmission Date: 20171127
  Serious: Yes (Death, Hospitalization)
  Sender: FDA-Public Use
  Company Number: CA-JNJFOC-20170527714

PATIENT
  Age: 59 Year
  Sex: Male

DRUGS (1)
  1. DARZALEX [Suspect]
     Active Substance: DARATUMUMAB
     Indication: PLASMA CELL MYELOMA
     Dosage: STRENGTH = 400 MG
     Route: 042
     Dates: start: 20160804, end: 20170519

REACTIONS (2)
  - Pneumonia [Recovering/Resolving]
  - Plasma cell myeloma [Fatal]

NARRATIVE: CASE EVENT DATE: 20170624
